FAERS Safety Report 15544573 (Version 2)
Quarter: 2018Q4

REPORT INFORMATION
  Report Type: Report from Study
  Country: None (occurrence: US)
  Receive Date: 20181024
  Receipt Date: 20181104
  Transmission Date: 20190205
  Serious: Yes (Hospitalization)
  Sender: FDA-Public Use
  Company Number: US-ABBVIE-18K-163-2524071-00

PATIENT
  Age: 27 Year
  Sex: Female
  Weight: 69.01 kg

DRUGS (4)
  1. ZOFRAN [Concomitant]
     Active Substance: ONDANSETRON HYDROCHLORIDE
     Indication: PRODUCT USED FOR UNKNOWN INDICATION
  2. HUMIRA [Suspect]
     Active Substance: ADALIMUMAB
     Indication: CROHN^S DISEASE
     Route: 058
     Dates: start: 201703, end: 20180929
  3. HUMIRA [Suspect]
     Active Substance: ADALIMUMAB
     Route: 058
     Dates: start: 20181027
  4. BACTRIM [Suspect]
     Active Substance: SULFAMETHOXAZOLE\TRIMETHOPRIM
     Indication: PRODUCT USED FOR UNKNOWN INDICATION
     Route: 058

REACTIONS (15)
  - Joint range of motion decreased [Recovering/Resolving]
  - Neck pain [Recovering/Resolving]
  - Foreign body in respiratory tract [Unknown]
  - Unevaluable event [Unknown]
  - Swelling face [Recovering/Resolving]
  - Lymphadenopathy [Recovering/Resolving]
  - Swelling face [Unknown]
  - Noninfective sialoadenitis [Unknown]
  - Arthropod bite [Unknown]
  - Urticaria [Unknown]
  - Acne [Unknown]
  - Infection [Unknown]
  - Endoscopy abnormal [Unknown]
  - Erythema [Unknown]
  - Salivary gland disorder [Unknown]

NARRATIVE: CASE EVENT DATE: 2018
